FAERS Safety Report 4641261-3 (Version None)
Quarter: 2005Q2

REPORT INFORMATION
  Report Type: 
  Country: None (occurrence: None)
  Receive Date: 20050419
  Receipt Date: 20050408
  Transmission Date: 20051028
  Serious: Yes (Hospitalization)
  Sender: FDA-Public Use
  Company Number: 03P-144-0239169-00

PATIENT
  Age: 79 Year
  Sex: Female
  Weight: 61 kg

DRUGS (14)
  1. HUMIRA [Suspect]
     Indication: RHEUMATOID ARTHRITIS
     Dosage: 1 IN 2 WK, SUBCUTANEOUS
     Route: 058
     Dates: start: 20030902, end: 20031014
  2. HUMIRA [Suspect]
     Indication: RHEUMATOID ARTHRITIS
     Dosage: 1 IN 2 WK, SUBCUTANEOUS
     Route: 058
     Dates: start: 20031212, end: 20040120
  3. SULFASALAZINE [Concomitant]
  4. CHLOROQUINE PHOSPHATE [Concomitant]
  5. METHOTREXATE [Concomitant]
  6. CYCLOSPORINE [Concomitant]
  7. INFLIXIMAB [Concomitant]
  8. LEFLUNOMIDE [Concomitant]
  9. MIRTAZAPINE [Concomitant]
  10. LORAZEPAM [Concomitant]
  11. METILDIGOXIN [Concomitant]
  12. ACENOCOUMAROL [Concomitant]
  13. ESPIRINOLACTONA [Concomitant]
  14. TORASENIDA [Concomitant]

REACTIONS (5)
  - BLINDNESS [None]
  - BLINDNESS TRANSIENT [None]
  - CORNEAL ABSCESS [None]
  - ENDOPHTHALMITIS [None]
  - STAPHYLOCOCCAL ABSCESS [None]
